FAERS Safety Report 20839251 (Version 1)
Quarter: 2022Q2

REPORT INFORMATION
  Report Type: Report from Study
  Country: US (occurrence: US)
  Receive Date: 20220517
  Receipt Date: 20220517
  Transmission Date: 20220721
  Serious: Yes (Hospitalization)
  Sender: FDA-Public Use
  Company Number: US-BIOVITRUM-2022US01647

PATIENT
  Sex: Male

DRUGS (2)
  1. ORFADIN [Suspect]
     Active Substance: NITISINONE
     Indication: Tyrosinaemia
     Route: 048
     Dates: start: 20140409
  2. ORFADIN [Suspect]
     Active Substance: NITISINONE
     Route: 048
     Dates: start: 20171028

REACTIONS (5)
  - Eye irritation [Unknown]
  - Testicular pain [Unknown]
  - Abdominal pain [Unknown]
  - Abdominal pain upper [Unknown]
  - Photophobia [Unknown]
